FAERS Safety Report 14797417 (Version 2)
Quarter: 2018Q2

REPORT INFORMATION
  Report Type: Spontaneous
  Country: DE (occurrence: DE)
  Receive Date: 20180424
  Receipt Date: 20180427
  Transmission Date: 20180711
  Serious: Yes (Other)
  Sender: FDA-Public Use
  Company Number: DE-BIOGEN-2018BI00544645

PATIENT
  Age: 31 Year
  Sex: Male

DRUGS (2)
  1. VENLAFAXIN [Concomitant]
     Active Substance: VENLAFAXINE HYDROCHLORIDE
     Indication: DEPRESSION
     Route: 065
     Dates: start: 20171121
  2. TYSABRI [Suspect]
     Active Substance: NATALIZUMAB
     Indication: MULTIPLE SCLEROSIS
     Route: 042
     Dates: start: 201311, end: 20180227

REACTIONS (2)
  - Hypersensitivity [Recovered/Resolved]
  - Ependymoma [Unknown]

NARRATIVE: CASE EVENT DATE: 20170627
